FAERS Safety Report 7237758-2 (Version None)
Quarter: 2011Q1

REPORT INFORMATION
  Report Type: 
  Country: None (occurrence: None)
  Receive Date: 20110121
  Receipt Date: 20110119
  Transmission Date: 20110831
  Serious: Yes (Death)
  Sender: FDA-Public Use
  Company Number: PHHY2010US88581

PATIENT
  Sex: Female
  Weight: 50 kg

DRUGS (1)
  1. EXJADE [Suspect]
     Indication: NEOPLASM
     Dosage: 250 MG, QD
     Route: 048
     Dates: start: 20090301, end: 20101208

REACTIONS (7)
  - GENERAL PHYSICAL HEALTH DETERIORATION [None]
  - HYPOPHAGIA [None]
  - DEHYDRATION [None]
  - CHRONIC LYMPHOCYTIC LEUKAEMIA [None]
  - B-CELL SMALL LYMPHOCYTIC LYMPHOMA [None]
  - FALL [None]
  - URINARY TRACT INFECTION [None]
